FAERS Safety Report 14599967 (Version 1)
Quarter: 2018Q1

REPORT INFORMATION
  Report Type: Spontaneous
  Country: ES (occurrence: ES)
  Receive Date: 20180305
  Receipt Date: 20180305
  Transmission Date: 20180509
  Serious: Yes (Other)
  Sender: FDA-Public Use
  Company Number: ES-SA-2018SA052969

PATIENT
  Age: 27 Year
  Sex: Female

DRUGS (1)
  1. RIFALDIN [Suspect]
     Active Substance: RIFAMPIN
     Indication: TUBERCULOSIS
     Route: 048
     Dates: start: 20180110

REACTIONS (7)
  - Urticaria [Unknown]
  - Gingival pain [Unknown]
  - Rash [Unknown]
  - Abdominal pain upper [Unknown]
  - Diarrhoea [Unknown]
  - Respiratory distress [Unknown]
  - Throat irritation [Unknown]

NARRATIVE: CASE EVENT DATE: 20180129
